FAERS Safety Report 22062386 (Version 2)
Quarter: 2023Q2

REPORT INFORMATION
  Report Type: Spontaneous
  Country: US (occurrence: US)
  Receive Date: 20230305
  Receipt Date: 20230606
  Transmission Date: 20230721
  Serious: No
  Sender: FDA-Public Use
  Company Number: US-SA-SAC20230302001618

PATIENT
  Sex: Male

DRUGS (1)
  1. DUPIXENT [Suspect]
     Active Substance: DUPILUMAB
     Indication: Eczema
     Dosage: 200 MG, FREQUENCY: OTHER
     Route: 058

REACTIONS (5)
  - Headache [Unknown]
  - Eyelid skin dryness [Unknown]
  - Rash [Recovered/Resolved]
  - Eczema [Unknown]
  - Therapeutic response shortened [Unknown]
